FAERS Safety Report 15117052 (Version 1)
Quarter: 2018Q3

REPORT INFORMATION
  Report Type: Spontaneous
  Country: FR (occurrence: FR)
  Receive Date: 20180706
  Receipt Date: 20180706
  Transmission Date: 20181010
  Serious: Yes (Other)
  Sender: FDA-Public Use
  Company Number: FR-SA-2018SA177472

PATIENT
  Age: 62 Year
  Sex: Female

DRUGS (1)
  1. KETEK [Suspect]
     Active Substance: TELITHROMYCIN

REACTIONS (3)
  - Feeling drunk [Unknown]
  - Hypersensitivity [Unknown]
  - Facial paralysis [Unknown]
